FAERS Safety Report 5941794-3 (Version None)
Quarter: 2008Q4

REPORT INFORMATION
  Report Type: 
  Country: None (occurrence: None)
  Receive Date: 20081105
  Receipt Date: 20081023
  Transmission Date: 20090506
  Serious: Yes (Death)
  Sender: FDA-Public Use
  Company Number: PHHY2008GB25509

PATIENT
  Age: 10 Month
  Sex: Male

DRUGS (1)
  1. CATAFLAM [Suspect]
     Indication: PYREXIA
     Dosage: 15 MG/ML

REACTIONS (1)
  - CHILD MALTREATMENT SYNDROME [None]
